FAERS Safety Report 7426026-1 (Version None)
Quarter: 2011Q2

REPORT INFORMATION
  Report Type: 
  Country: None (occurrence: None)
  Receive Date: 20110420
  Receipt Date: 20110415
  Transmission Date: 20111010
  Serious: Yes (Other)
  Sender: FDA-Public Use
  Company Number: A0923275A

PATIENT
  Age: 50 Year
  Sex: Female

DRUGS (2)
  1. ALLI [Suspect]
     Indication: WEIGHT LOSS DIET
     Route: 048
     Dates: start: 20110201, end: 20110413
  2. LIPITOR [Concomitant]

REACTIONS (3)
  - ABDOMINAL DISTENSION [None]
  - LIVER FUNCTION TEST ABNORMAL [None]
  - DRUG INEFFECTIVE [None]
